FAERS Safety Report 7937675-6 (Version None)
Quarter: 2011Q4

REPORT INFORMATION
  Report Type: 
  Country: None (occurrence: None)
  Receive Date: 20111123
  Receipt Date: 20111112
  Transmission Date: 20120403
  Serious: Yes (Other)
  Sender: FDA-Public Use
  Company Number: PHHY2008BR00825

PATIENT
  Sex: Female

DRUGS (10)
  1. DIOVAN [Suspect]
     Indication: HYPERTENSION
     Dosage: 80 MG,  ONE TABLET DAILY
     Route: 048
  2. DIOVAN HCT [Suspect]
     Dosage: 1 TABLET A DAY (320/12.5 MG)
  3. DIOVAN HCT [Suspect]
     Indication: HYPERTENSION
     Dosage: 1 TABLET A DAY (160/12.5 MG)
  4. DIOVAN [Suspect]
     Dosage: 160 MG, UNK
     Route: 048
  5. DIOVAN [Suspect]
     Dosage: 320 MG, DAILY
     Route: 048
  6. DIOVAN [Suspect]
     Dosage: 80 MG, BID
     Route: 048
  7. ZELMAC [Suspect]
     Indication: ILEUS
     Dosage: 6 MG,1 TABLET DAILY
     Route: 048
     Dates: end: 20080109
  8. METFORMIN [Concomitant]
     Dosage: 2 DF(850 MG), DAILY
  9. METFORMIN [Concomitant]
     Dosage: 1 DF (850 MG), DAILY
  10. ALPRAZOLAM [Concomitant]
     Indication: ANXIETY
     Dosage: 0.5 MG, QD
     Route: 048

REACTIONS (15)
  - HEAD DISCOMFORT [None]
  - VOMITING [None]
  - ABDOMINAL PAIN UPPER [None]
  - ABDOMINAL PAIN [None]
  - BACK PAIN [None]
  - DIABETES MELLITUS [None]
  - BONE PAIN [None]
  - GENERALISED ERYTHEMA [None]
  - FATIGUE [None]
  - HEADACHE [None]
  - DYSPNOEA [None]
  - NECK PAIN [None]
  - BLOOD PRESSURE FLUCTUATION [None]
  - URTICARIA [None]
  - INSOMNIA [None]
